FAERS Safety Report 9004322 (Version 1)
Quarter: 2013Q1

REPORT INFORMATION
  Report Type: Spontaneous
  Country: US (occurrence: None)
  Receive Date: 20130104
  Receipt Date: 20130104
  Transmission Date: 20140127
  Serious: Yes (Disabling, Other)
  Sender: FDA-Public Use
  Company Number: None

PATIENT
  Age: 47 Year
  Sex: Female
  Weight: 58.97 kg

DRUGS (2)
  1. KENALOG [Suspect]
     Indication: DERMATITIS CONTACT
     Dosage: 80 MG 1X IM
     Route: 030
     Dates: start: 20100703, end: 20100703
  2. KENALOG [Suspect]
     Indication: DERMATITIS CONTACT
     Dosage: 80 MG 1X IM
     Route: 030
     Dates: start: 20100703, end: 20100703

REACTIONS (13)
  - Injection site atrophy [None]
  - Injection site bruising [None]
  - Injection site discolouration [None]
  - Injection site pain [None]
  - Arthralgia [None]
  - Pain in extremity [None]
  - Mobility decreased [None]
  - Sleep disorder [None]
  - Vision blurred [None]
  - Menorrhagia [None]
  - Disturbance in attention [None]
  - Insomnia [None]
  - Depression [None]
